FAERS Safety Report 6867184-7 (Version None)
Quarter: 2010Q3

REPORT INFORMATION
  Report Type: 
  Country: None (occurrence: None)
  Receive Date: 20100722
  Receipt Date: 20100715
  Transmission Date: 20110219
  Serious: Yes (Hospitalization)
  Sender: FDA-Public Use
  Company Number: B0555229A

PATIENT
  Age: 75 Year
  Sex: Male

DRUGS (11)
  1. CARVEDILOL [Suspect]
     Dosage: 25MG TWICE PER DAY
     Route: 048
  2. ACETYLSALICYLIC ACID [Concomitant]
  3. AMLODIPINE [Concomitant]
  4. BETAHISTINE [Concomitant]
  5. DIOVAN [Concomitant]
  6. HYDROCHLOROTHIAZIDE [Concomitant]
  7. ISOSORBIDE DINITRATE [Concomitant]
  8. PANTOZOL [Concomitant]
  9. RAMIPRIL [Concomitant]
  10. SERENOA REPENS [Concomitant]
  11. SIMVASTATIN [Concomitant]

REACTIONS (3)
  - BLOOD UREA INCREASED [None]
  - BRADYCARDIA [None]
  - DIZZINESS [None]
